FAERS Safety Report 8763792 (Version 1)
Quarter: 2012Q4

REPORT INFORMATION
  Report Type: 
  Country: US (occurrence: US)
  Receive Date: 20120831
  Receipt Date: 20120831
  Transmission Date: 20130627
  Serious: Yes (Other)
  Sender: FDA-Public Use
  Company Number: US-PFIZER INC-2012210799

PATIENT
  Age: 68 Year
  Sex: Female
  Weight: 102.5 kg

DRUGS (6)
  1. HYDROCORTISONE [Suspect]
     Indication: ADRENAL INSUFFICIENCY
     Dosage: UNK
     Dates: start: 2008
  2. CARBOPLATIN [Suspect]
     Indication: OVARIAN CANCER
     Dosage: UNK
  3. MAGNESIUM OXIDE [Concomitant]
     Dosage: UNK
  4. ALLOPURINOL [Concomitant]
     Dosage: 100 mg, 2x/day
  5. LEVOTHYROXINE [Concomitant]
     Indication: HYPOTHYROIDISM
     Dosage: UNK, 1x/day
  6. IRON [Concomitant]
     Dosage: 65 mg, 1x/day

REACTIONS (3)
  - Renal cell carcinoma [Not Recovered/Not Resolved]
  - Ovarian cancer [Not Recovered/Not Resolved]
  - Drug resistance [Unknown]
